FAERS Safety Report 7578121-4 (Version None)
Quarter: 2011Q2

REPORT INFORMATION
  Report Type: 
  Country: None (occurrence: None)
  Receive Date: 20110628
  Receipt Date: 20110607
  Transmission Date: 20111010
  Serious: Yes (Hospitalization)
  Sender: FDA-Public Use
  Company Number: A0731799A

PATIENT
  Age: 50 Year
  Sex: Male
  Weight: 156.8 kg

DRUGS (2)
  1. AVANDIA [Suspect]
     Dosage: 8MG TWICE PER DAY
     Route: 048
     Dates: start: 19990706, end: 20000801
  2. ACTOS [Concomitant]

REACTIONS (3)
  - MYOCARDIAL INFARCTION [None]
  - ATRIAL FLUTTER [None]
  - CARDIAC FAILURE CONGESTIVE [None]
